FAERS Safety Report 5078675-6 (Version None)
Quarter: 2006Q3

REPORT INFORMATION
  Report Type: 
  Country: None (occurrence: None)
  Receive Date: 20060810
  Receipt Date: 20060810
  Transmission Date: 20061208
  Serious: Yes (Other)
  Sender: FDA-Public Use
  Company Number: None

PATIENT
  Age: 62 Year
  Sex: Female
  Weight: 95.2554 kg

DRUGS (9)
  1. EPINEPHRINE [Suspect]
     Indication: CATARACT OPERATION
     Dosage: 1 ML IN BSS 500 ML ONCE OPHTHALMIC
     Route: 047
     Dates: start: 20060601, end: 20060601
  2. EPINEPHRINE [Suspect]
     Indication: EYE IRRIGATION
     Dosage: 1 ML IN BSS 500 ML ONCE OPHTHALMIC
     Route: 047
     Dates: start: 20060601, end: 20060601
  3. CIPROFLOXACIN OPTH [Concomitant]
  4. TIMOLOL OPHTH [Concomitant]
  5. TETRACAINE OPHTH [Concomitant]
  6. FLURBIPROFEN OPHTH [Concomitant]
  7. PHENYLEPHRINE OPHTH [Concomitant]
  8. TROPICAMIDE OPTH [Concomitant]
  9. CYCLOGEL OPTH [Concomitant]

REACTIONS (3)
  - CATARACT OPERATION COMPLICATION [None]
  - ENDOPHTHALMITIS [None]
  - POST PROCEDURAL COMPLICATION [None]
